FAERS Safety Report 8458719 (Version 49)
Quarter: 2019Q4

REPORT INFORMATION
  Report Type: Report from Study
  Country: CA (occurrence: CA)
  Receive Date: 20120314
  Receipt Date: 20191219
  Transmission Date: 20200122
  Serious: Yes (Other)
  Sender: FDA-Public Use
  Company Number: CA-ROCHE-1045769

PATIENT
  Age: 39 Year
  Sex: Female
  Weight: 68 kg

DRUGS (18)
  1. SIMPONI [Concomitant]
     Active Substance: GOLIMUMAB
     Route: 058
  2. ACTEMRA [Suspect]
     Active Substance: TOCILIZUMAB
     Route: 042
     Dates: start: 20170905
  3. SYNTHROID [Concomitant]
     Active Substance: LEVOTHYROXINE SODIUM
  4. METHOTREXATE. [Concomitant]
     Active Substance: METHOTREXATE
  5. DEXILANT [Concomitant]
     Active Substance: DEXLANSOPRAZOLE
  6. LYRICA [Concomitant]
     Active Substance: PREGABALIN
  7. ACTEMRA [Suspect]
     Active Substance: TOCILIZUMAB
     Indication: RHEUMATOID ARTHRITIS
     Route: 042
     Dates: start: 20111228
  8. ACTEMRA [Suspect]
     Active Substance: TOCILIZUMAB
     Route: 042
     Dates: start: 20180705
  9. CYMBALTA [Concomitant]
     Active Substance: DULOXETINE HYDROCHLORIDE
     Route: 048
  10. ACTEMRA [Suspect]
     Active Substance: TOCILIZUMAB
     Route: 042
     Dates: start: 20120202
  11. ACTEMRA [Suspect]
     Active Substance: TOCILIZUMAB
     Route: 042
     Dates: start: 20150307
  12. TRIDURAL [Suspect]
     Active Substance: TRAMADOL HYDROCHLORIDE
     Indication: PRODUCT USED FOR UNKNOWN INDICATION
     Route: 065
     Dates: end: 20120129
  13. ACTEMRA [Suspect]
     Active Substance: TOCILIZUMAB
     Route: 042
     Dates: start: 20180731
  14. CELEBREX [Suspect]
     Active Substance: CELECOXIB
     Route: 048
  15. PLAQUENIL [Concomitant]
     Active Substance: HYDROXYCHLOROQUINE SULFATE
     Route: 048
  16. CELEBREX [Suspect]
     Active Substance: CELECOXIB
     Indication: PRODUCT USED FOR UNKNOWN INDICATION
     Route: 048
     Dates: end: 2013
  17. TRAMADOL. [Concomitant]
     Active Substance: TRAMADOL
  18. NITROFURANTOIN. [Concomitant]
     Active Substance: NITROFURANTOIN

REACTIONS (72)
  - Breast cyst [Not Recovered/Not Resolved]
  - Rhinorrhoea [Recovered/Resolved]
  - Arthralgia [Unknown]
  - Fatigue [Not Recovered/Not Resolved]
  - Eye inflammation [Unknown]
  - Limb mass [Unknown]
  - Drug hypersensitivity [Unknown]
  - Oral herpes [Not Recovered/Not Resolved]
  - Discomfort [Unknown]
  - Peripheral swelling [Unknown]
  - Rash [Recovering/Resolving]
  - Pain [Unknown]
  - Nausea [Recovered/Resolved]
  - Productive cough [Unknown]
  - Nasopharyngitis [Not Recovered/Not Resolved]
  - Limb mass [Not Recovered/Not Resolved]
  - Headache [Unknown]
  - Weight decreased [Recovered/Resolved]
  - Bursitis [Not Recovered/Not Resolved]
  - Haemoptysis [Recovered/Resolved]
  - Dyspepsia [Recovered/Resolved]
  - Nasopharyngitis [Not Recovered/Not Resolved]
  - Myalgia [Unknown]
  - Pain [Recovered/Resolved]
  - Cough [Recovering/Resolving]
  - Arthralgia [Not Recovered/Not Resolved]
  - Aphasia [Not Recovered/Not Resolved]
  - Headache [Unknown]
  - Hypotension [Unknown]
  - Neuralgia [Unknown]
  - Cough [Recovered/Resolved]
  - Arthralgia [Not Recovered/Not Resolved]
  - Hypersensitivity [Unknown]
  - Tremor [Not Recovered/Not Resolved]
  - Stomatitis [Unknown]
  - Pruritus [Recovering/Resolving]
  - Rash [Recovering/Resolving]
  - Pain [Not Recovered/Not Resolved]
  - Weight decreased [Not Recovered/Not Resolved]
  - Laryngitis [Not Recovered/Not Resolved]
  - Weight increased [Not Recovered/Not Resolved]
  - Pain in extremity [Not Recovered/Not Resolved]
  - Infection [Unknown]
  - Joint swelling [Unknown]
  - Electrocardiogram abnormal [Unknown]
  - Loss of consciousness [Recovered/Resolved]
  - Trigger finger [Unknown]
  - Cystitis [Unknown]
  - Herpes zoster [Unknown]
  - Platelet morphology abnormal [Unknown]
  - Erythema [Unknown]
  - Feeling hot [Unknown]
  - Syncope [Recovered/Resolved]
  - Unevaluable event [Unknown]
  - Abdominal pain [Recovered/Resolved]
  - Brain neoplasm benign [Not Recovered/Not Resolved]
  - Lower respiratory tract infection [Not Recovered/Not Resolved]
  - Drug ineffective [Unknown]
  - Tongue discomfort [Unknown]
  - Swollen tongue [Unknown]
  - Arthralgia [Unknown]
  - Investigation abnormal [Unknown]
  - Feeling hot [Unknown]
  - Pyrexia [Recovered/Resolved]
  - Throat irritation [Unknown]
  - Loss of personal independence in daily activities [Not Recovered/Not Resolved]
  - Oral mucosal blistering [Unknown]
  - Electric shock [Not Recovered/Not Resolved]
  - Rash [Unknown]
  - Contusion [Unknown]
  - Heart rate decreased [Unknown]
  - Erythema [Unknown]

NARRATIVE: CASE EVENT DATE: 20120209
